FAERS Safety Report 7034486-3 (Version None)
Quarter: 2010Q4

REPORT INFORMATION
  Report Type: 
  Country: None (occurrence: None)
  Receive Date: 20101008
  Receipt Date: 20100928
  Transmission Date: 20110411
  Serious: Yes (Hospitalization)
  Sender: FDA-Public Use
  Company Number: CA-JNJFOC-20100908789

PATIENT
  Sex: Male
  Weight: 113.5 kg

DRUGS (8)
  1. REMICADE [Suspect]
     Indication: ANKYLOSING SPONDYLITIS
     Route: 042
  2. REMICADE [Suspect]
     Route: 042
  3. DILANTIN [Suspect]
     Indication: EPILEPSY
  4. METHOTREXATE [Concomitant]
  5. VALPROATE SODIUM [Concomitant]
  6. ALTACE [Concomitant]
  7. HYDROCHLOROTHIAZIDE [Concomitant]
  8. TYLENOL [Concomitant]

REACTIONS (1)
  - DRUG LEVEL INCREASED [None]
